FAERS Safety Report 7637428-2 (Version None)
Quarter: 2011Q3

REPORT INFORMATION
  Report Type: 
  Country: None (occurrence: None)
  Receive Date: 20110726
  Receipt Date: 20110719
  Transmission Date: 20111222
  Serious: Yes (Other)
  Sender: FDA-Public Use
  Company Number: US-PFIZER INC-2011079580

PATIENT
  Sex: Female

DRUGS (5)
  1. ATENOLOL/HYDROCHLOROTHIAZIDE [Concomitant]
     Dosage: 25 MG/325MG
  2. LISINOPRIL [Concomitant]
     Dosage: 10 MG, UNK
  3. ZITHROMAX [Suspect]
     Indication: BRONCHITIS
     Dosage: 500 MG, DAILY X 5 DAYS
     Route: 048
     Dates: start: 20110323, end: 20110325
  4. PANTOPRAZOLE [Concomitant]
     Dosage: 40 MG, UNK
  5. RISEDRONATE SODIUM [Concomitant]
     Dosage: 35 MG, UNK

REACTIONS (8)
  - DEAFNESS [None]
  - DYSGEUSIA [None]
  - ABDOMINAL PAIN [None]
  - VISION BLURRED [None]
  - NERVOUSNESS [None]
  - VOMITING [None]
  - SUDDEN HEARING LOSS [None]
  - NAUSEA [None]
